FAERS Safety Report 8453808-X (Version None)
Quarter: 2012Q2

REPORT INFORMATION
  Report Type: 
  Country: None (occurrence: None)
  Receive Date: 20120620
  Receipt Date: 20120607
  Transmission Date: 20120825
  Serious: No
  Sender: FDA-Public Use
  Company Number: US-ASTRAZENECA-2012SE38232

PATIENT
  Age: 61 Year
  Sex: Female
  Weight: 68 kg

DRUGS (7)
  1. SEROQUEL [Suspect]
     Route: 048
  2. SEROQUEL [Suspect]
     Route: 048
  3. TRAMADOL HCL [Concomitant]
  4. SEROQUEL [Suspect]
     Indication: SLEEP DISORDER
     Route: 048
     Dates: start: 20120101, end: 20120301
  5. TRAZODONE HCL [Concomitant]
  6. MELATONIN [Concomitant]
  7. VALIUM [Concomitant]

REACTIONS (10)
  - BACK PAIN [None]
  - OFF LABEL USE [None]
  - HYPERSOMNIA [None]
  - MUSCULOSKELETAL PAIN [None]
  - SPINAL COLUMN STENOSIS [None]
  - FALL [None]
  - BACK INJURY [None]
  - JOINT INJURY [None]
  - BODY HEIGHT DECREASED [None]
  - INTENTIONAL DRUG MISUSE [None]
